FAERS Safety Report 14144988 (Version 1)
Quarter: 2017Q4

REPORT INFORMATION
  Report Type: Spontaneous
  Country: KR (occurrence: KR)
  Receive Date: 20171031
  Receipt Date: 20171031
  Transmission Date: 20180321
  Serious: Yes (Death)
  Sender: FDA-Public Use
  Company Number: KR-ABBVIE-17S-090-2145302-00

PATIENT
  Age: 30 Month
  Sex: Female

DRUGS (6)
  1. MIDAZOLAM [Suspect]
     Active Substance: MIDAZOLAM HYDROCHLORIDE
     Indication: DENTAL CARE
  2. SEVOFRANE [Suspect]
     Active Substance: SEVOFLURANE
     Indication: GENERAL ANAESTHESIA
     Dosage: 4ML%
     Route: 055
     Dates: start: 20171020
  3. SEVOFRANE [Suspect]
     Active Substance: SEVOFLURANE
     Indication: DENTAL CARIES
  4. MIDAZOLAM [Suspect]
     Active Substance: MIDAZOLAM HYDROCHLORIDE
     Indication: DENTAL CARIES
  5. MIDAZOLAM [Suspect]
     Active Substance: MIDAZOLAM HYDROCHLORIDE
     Indication: INDUCTION OF ANAESTHESIA
     Route: 065
     Dates: start: 20171020
  6. SEVOFRANE [Suspect]
     Active Substance: SEVOFLURANE
     Indication: DENTAL CARE

REACTIONS (2)
  - Dyspnoea [Fatal]
  - Off label use [Unknown]

NARRATIVE: CASE EVENT DATE: 20171020
